FAERS Safety Report 23769854 (Version 1)
Quarter: 2024Q2

REPORT INFORMATION
  Report Type: Spontaneous
  Country: US (occurrence: None)
  Receive Date: 20240421
  Receipt Date: 20240421
  Transmission Date: 20240716
  Serious: Yes (unspecified)
  Sender: FDA-Public Use
  Company Number: None

PATIENT
  Age: 29 Year
  Sex: Male
  Weight: 67.05 kg

DRUGS (11)
  1. FINASTERIDE [Suspect]
     Active Substance: FINASTERIDE
  2. DUTASTERIDE [Suspect]
     Active Substance: DUTASTERIDE
  3. UNSPECIFIED INGREDIENT [Concomitant]
     Active Substance: UNSPECIFIED INGREDIENT
  4. WHEY [Concomitant]
     Active Substance: WHEY
  5. CAFFEINE [Concomitant]
     Active Substance: CAFFEINE
  6. MELATONIN [Concomitant]
     Active Substance: MELATONIN
  7. ZINC [Concomitant]
     Active Substance: PYRITHIONE ZINC\ZINC\ZINC CHLORIDE
  8. VITAMINS [Concomitant]
     Active Substance: VITAMINS
  9. CREATINE [Concomitant]
     Active Substance: CREATINE
  10. HERBALS\SAW PALMETTO [Concomitant]
     Active Substance: HERBALS\SAW PALMETTO
  11. DIPHENHYDRAMINE [Concomitant]
     Active Substance: DIPHENHYDRAMINE

REACTIONS (6)
  - Alopecia [None]
  - Economic problem [None]
  - Muscle disorder [None]
  - Asthenia [None]
  - Fat tissue increased [None]
  - Therapy cessation [None]

NARRATIVE: CASE EVENT DATE: 20230801
